FAERS Safety Report 8558789-6 (Version None)
Quarter: 2012Q3

REPORT INFORMATION
  Report Type: 
  Country: None (occurrence: None)
  Receive Date: 20120801
  Receipt Date: 20120719
  Transmission Date: 20120928
  Serious: Yes (Death)
  Sender: FDA-Public Use
  Company Number: AU-009507513-1207AUS007752

PATIENT

DRUGS (2)
  1. METHOTREXATE [Concomitant]
     Dosage: 30-60 MG, DAILY
  2. INTRON A [Suspect]
     Dosage: 0.5 MILLION IU, Q3W
     Dates: start: 20120501

REACTIONS (7)
  - RASH [None]
  - DISEASE PROGRESSION [None]
  - FATIGUE [None]
  - SKIN LESION [None]
  - DECREASED APPETITE [None]
  - POOR QUALITY SLEEP [None]
  - DEATH [None]
